FAERS Safety Report 6206653-X (Version None)
Quarter: 2009Q2

REPORT INFORMATION
  Report Type: 
  Country: None (occurrence: None)
  Receive Date: 20090528
  Receipt Date: 20090519
  Transmission Date: 20091009
  Serious: Yes (Hospitalization)
  Sender: FDA-Public Use
  Company Number: JP-ASTRAZENECA-2009AP03297

PATIENT
  Age: 27223 Day
  Sex: Male

DRUGS (3)
  1. MEROPEN [Suspect]
     Indication: PYREXIA
     Route: 041
     Dates: start: 20090309, end: 20090312
  2. BFLUID [Concomitant]
  3. VENOGLOBULIN [Concomitant]

REACTIONS (1)
  - RENAL IMPAIRMENT [None]
